FAERS Safety Report 7170683-4 (Version None)
Quarter: 2010Q4

REPORT INFORMATION
  Report Type: 
  Country: None (occurrence: None)
  Receive Date: 20101206
  Receipt Date: 20101119
  Transmission Date: 20110411
  Serious: Yes (Hospitalization)
  Sender: FDA-Public Use
  Company Number: IPC201011-000306

PATIENT
  Age: 32 Year
  Sex: Male
  Weight: 157 kg

DRUGS (13)
  1. HYDROCHLOROTHIAZIDE [Suspect]
     Dosage: 25 MG DAILY
  2. METOPROLOL TARTRATE [Suspect]
     Dosage: EXTENDED RELEASE 100 MG TWICE DAILY
  3. METOCLOPRAMIDE HYDROCHLORIDE [Suspect]
     Dosage: 10 MG EVERY 8 HOURS AS NEEDED
  4. PHENTERMINE HYDROCHLORIDE [Suspect]
     Indication: WEIGHT CONTROL
     Dosage: 37.5 MG, TWICE A DAY
  5. IRBESARTAN [Suspect]
     Dosage: 300 MG
  6. ESOMEPRAZOLE [Suspect]
     Dosage: 40 MG DAILY
  7. LEVOTHYROXINE [Suspect]
     Dosage: 112 UG DAILY
  8. DICYCLOMINE [Suspect]
     Dosage: 10 MG FOUR TIMES DAILY
  9. OXYCODONE HCL AND ACETAMINOPHEN [Suspect]
     Dosage: TWO TABLETS EVERY 4 HOURS AS NEEDED
  10. OXYCODONE HCL [Suspect]
     Dosage: EXTENDED RELEASE 60 MG TWICE DAILY
  11. PROCHLORPERAZINE [Suspect]
     Dosage: 25 MG EVERY 12 HOURS RECTALLY AS NEEDED
  12. TESTOSTERONE [Suspect]
     Dosage: 5 MG DAILY
  13. IBUPROFEN [Suspect]
     Dosage: 800 MG

REACTIONS (20)
  - ALANINE AMINOTRANSFERASE INCREASED [None]
  - ASPARTATE AMINOTRANSFERASE INCREASED [None]
  - BLOOD BICARBONATE DECREASED [None]
  - BLOOD CALCIUM DECREASED [None]
  - BLOOD GLUCOSE INCREASED [None]
  - CALCULUS URINARY [None]
  - DILATATION VENTRICULAR [None]
  - ELECTROCARDIOGRAM T WAVE ABNORMAL [None]
  - HYPERURICAEMIA [None]
  - INCORRECT DOSE ADMINISTERED [None]
  - KIDNEY INFECTION [None]
  - LETHARGY [None]
  - MYOCARDIAL INFARCTION [None]
  - NEPHROLITHIASIS [None]
  - PAROTITIS [None]
  - RASH [None]
  - RENAL FAILURE ACUTE [None]
  - RHABDOMYOLYSIS [None]
  - SINUS TACHYCARDIA [None]
  - TROPONIN INCREASED [None]
